FAERS Safety Report 7833576-2 (Version None)
Quarter: 2011Q4

REPORT INFORMATION
  Report Type: 
  Country: None (occurrence: None)
  Receive Date: 20111024
  Receipt Date: 20111014
  Transmission Date: 20120403
  Serious: Yes (Other)
  Sender: FDA-Public Use
  Company Number: US-SANOFI-AVENTIS-2011SA068698

PATIENT
  Age: 67 Year
  Sex: Female
  Weight: 41 kg

DRUGS (5)
  1. ALLEGRA [Suspect]
     Indication: ASTHMA
     Route: 048
  2. ALLEGRA [Suspect]
     Route: 048
  3. ALL OTHER THERAPEUTIC PRODUCTS [Concomitant]
  4. ALLEGRA [Suspect]
     Route: 048
  5. ALLEGRA [Suspect]
     Indication: SINUSITIS
     Route: 048

REACTIONS (2)
  - ILL-DEFINED DISORDER [None]
  - PNEUMONIA [None]
